FAERS Safety Report 22304214 (Version 1)
Quarter: 2023Q2

REPORT INFORMATION
  Report Type: Spontaneous
  Country: US (occurrence: US)
  Receive Date: 20230510
  Receipt Date: 20230510
  Transmission Date: 20230721
  Serious: Yes (Hospitalization, Other)
  Sender: FDA-Public Use
  Company Number: US-SUN PHARMACEUTICAL INDUSTRIES LTD-2023R1-388154

PATIENT
  Age: 3 Year
  Sex: Female

DRUGS (5)
  1. CLONIDINE [Suspect]
     Active Substance: CLONIDINE
     Indication: Hypertension
     Dosage: 2 MICROGRAM/KILOGRAM,Q 8 HOURS
     Route: 065
  2. CLONIDINE [Suspect]
     Active Substance: CLONIDINE
     Dosage: 14 MICROGRAM/KILOGRAM, DAILY
     Route: 065
  3. DOXAZOSIN [Suspect]
     Active Substance: DOXAZOSIN MESYLATE
     Indication: Hypertension
     Dosage: 0.06 MILLIGRAM/KILOGRAM, DAILY
     Route: 065
  4. LABETALOL [Suspect]
     Active Substance: LABETALOL\LABETALOL HYDROCHLORIDE
     Indication: Hypertension
     Route: 048
  5. LABETALOL [Suspect]
     Active Substance: LABETALOL\LABETALOL HYDROCHLORIDE
     Dosage: 1.2 MILLIGRAM/KILOGRAM, DAILY
     Route: 048

REACTIONS (2)
  - Mental status changes [Unknown]
  - Drug ineffective [Unknown]
